FAERS Safety Report 13425524 (Version 3)
Quarter: 2017Q3

REPORT INFORMATION
  Report Type: Report from Study
  Country: US (occurrence: US)
  Receive Date: 20170411
  Receipt Date: 20170705
  Transmission Date: 20171127
  Serious: Yes (Other)
  Sender: FDA-Public Use
  Company Number: PHEH2017US010290

PATIENT
  Sex: Female
  Weight: 103.8 kg

DRUGS (11)
  1. PROMACTA [Suspect]
     Active Substance: ELTROMBOPAG OLAMINE
     Dosage: 75 MG, QD
     Route: 048
     Dates: start: 20170327
  2. AMLODIPINE [Concomitant]
     Active Substance: AMLODIPINE BESYLATE
     Indication: PRODUCT USED FOR UNKNOWN INDICATION
     Dosage: 1 DF, BID
     Route: 048
     Dates: start: 20170105
  3. GABAPENTIN. [Concomitant]
     Active Substance: GABAPENTIN
     Indication: PRODUCT USED FOR UNKNOWN INDICATION
     Dosage: 1 DF, QD
     Route: 048
     Dates: start: 20170404
  4. OXYCODONE [Concomitant]
     Active Substance: OXYCODONE
     Indication: BREAKTHROUGH PAIN
     Dosage: 1 DF, Q4H
     Route: 065
     Dates: start: 20170404
  5. OXYCODONE [Concomitant]
     Active Substance: OXYCODONE
     Indication: PAIN
     Dosage: 1 DF, Q8H
     Route: 065
     Dates: start: 20170316
  6. MAGNESIUM CITRATE. [Concomitant]
     Active Substance: MAGNESIUM CITRATE
     Indication: PRODUCT USED FOR UNKNOWN INDICATION
     Dosage: 1 DF, BID
     Route: 065
     Dates: start: 20161117
  7. PROMACTA [Suspect]
     Active Substance: ELTROMBOPAG OLAMINE
     Indication: IMMUNE THROMBOCYTOPENIC PURPURA
     Dosage: 3 DF, QD
     Route: 048
     Dates: start: 20161019
  8. LISINOPRIL. [Concomitant]
     Active Substance: LISINOPRIL
     Indication: PRODUCT USED FOR UNKNOWN INDICATION
     Dosage: UNK
     Route: 065
     Dates: start: 20170316
  9. PROBIOTIC [Concomitant]
     Active Substance: PROBIOTICS NOS
     Indication: PRODUCT USED FOR UNKNOWN INDICATION
     Dosage: 1 DF, QD
     Route: 048
     Dates: start: 20151208
  10. PROMACTA [Suspect]
     Active Substance: ELTROMBOPAG OLAMINE
     Dosage: 3 DF, QD
     Route: 048
     Dates: start: 20170323
  11. RITUXIMAB. [Suspect]
     Active Substance: RITUXIMAB
     Indication: PRODUCT USED FOR UNKNOWN INDICATION
     Dosage: 375 MG/M2, QW
     Route: 042
     Dates: start: 20170402

REACTIONS (24)
  - Night sweats [Unknown]
  - Movement disorder [Unknown]
  - Pollakiuria [Unknown]
  - Palpitations [Unknown]
  - Haematochezia [Unknown]
  - Platelet count decreased [Unknown]
  - Weight decreased [Unknown]
  - Dyspnoea exertional [Unknown]
  - Flushing [Unknown]
  - Arthralgia [Unknown]
  - Diarrhoea [Unknown]
  - Oedema [Unknown]
  - Myalgia [Unknown]
  - Back pain [Unknown]
  - Bone pain [Unknown]
  - Xerophthalmia [Unknown]
  - Asthenia [Unknown]
  - Abdominal pain [Unknown]
  - Chills [Unknown]
  - Pain [Unknown]
  - Vision blurred [Unknown]
  - Nocturia [Unknown]
  - Epistaxis [Unknown]
  - Constipation [Unknown]
